FAERS Safety Report 23709686 (Version 1)
Quarter: 2024Q2

REPORT INFORMATION
  Report Type: Spontaneous
  Country: JP (occurrence: JP)
  Receive Date: 20240404
  Receipt Date: 20240404
  Transmission Date: 20240716
  Serious: Yes (Hospitalization, Other)
  Sender: FDA-Public Use
  Company Number: JP-MSD-M2024-12448

PATIENT
  Age: 57 Year
  Sex: Male

DRUGS (6)
  1. KEYTRUDA [Suspect]
     Active Substance: PEMBROLIZUMAB
     Indication: Tongue carcinoma stage IV
     Dosage: 200 MILLIGRAM, Q3W
     Route: 041
     Dates: start: 20230606, end: 20231212
  2. KEYTRUDA [Suspect]
     Active Substance: PEMBROLIZUMAB
     Indication: PD-L1 positive cancer
  3. CISPLATIN [Suspect]
     Active Substance: CISPLATIN
     Indication: Tongue carcinoma stage IV
     Dosage: UNK
     Route: 065
     Dates: start: 20230606, end: 2023
  4. CISPLATIN [Suspect]
     Active Substance: CISPLATIN
     Indication: PD-L1 positive cancer
  5. FLUOROURACIL [Suspect]
     Active Substance: FLUOROURACIL
     Indication: Tongue carcinoma stage IV
     Dosage: UNK
     Route: 065
     Dates: start: 20230606, end: 2023
  6. FLUOROURACIL [Suspect]
     Active Substance: FLUOROURACIL
     Indication: PD-L1 positive cancer

REACTIONS (2)
  - Cholecystitis acute [Recovered/Resolved]
  - Guillain-Barre syndrome [Recovering/Resolving]

NARRATIVE: CASE EVENT DATE: 20231201
